FAERS Safety Report 5731293-6 (Version None)
Quarter: 2008Q3

REPORT INFORMATION
  Report Type: 
  Country: None (occurrence: None)
  Receive Date: 20080505
  Receipt Date: 20080320
  Transmission Date: 20090109
  Serious: Yes (Death, Hospitalization)
  Sender: FDA-Public Use
  Company Number: 530#6#2008-00011

PATIENT
  Age: 83 Year
  Sex: Male

DRUGS (13)
  1. NEUPRO [Suspect]
     Indication: PARKINSON'S DISEASE
     Dosage: 2 MG/M24H (2MG/24H 1 IN 1 DAY(S)); 4 MG/24H (4 MG/24H 1 IN 1 DAY(S))
     Route: 062
     Dates: start: 20071023, end: 20071025
  2. NEUPRO [Suspect]
     Indication: PARKINSON'S DISEASE
     Dosage: 2 MG/M24H (2MG/24H 1 IN 1 DAY(S)); 4 MG/24H (4 MG/24H 1 IN 1 DAY(S))
     Route: 062
     Dates: start: 20071026, end: 20080121
  3. ACETYLSALICYLIC ACID SRT [Concomitant]
  4. CARBIDOPA AND LEVODOPA [Suspect]
     Indication: PARKINSON'S DISEASE
     Dosage: 3 X 200/50 MG PER DAY
     Route: 048
     Dates: start: 20060601, end: 20071025
  5. CARBIDOPA AND LEVODOPA [Suspect]
     Indication: PARKINSON'S DISEASE
     Dosage: 3 X 100/25 MG PER DAY
     Route: 048
     Dates: start: 20071026, end: 20080121
  6. INSULIN HUMAN, ISOPHANE [Concomitant]
  7. INSULIN ASPART [Concomitant]
  8. METOPROLOL TARTRATE [Concomitant]
  9. OXYCODONE HCL [Concomitant]
  10. TORSEMIDE [Concomitant]
  11. TRIMIPRAMINE MALEATE [Concomitant]
  12. CITALOPRAM HYDROBROMIDE [Concomitant]
  13. BETA ACETYLDIGOXINE [Concomitant]

REACTIONS (1)
  - PNEUMONIA [None]
